FAERS Safety Report 10083363 (Version 1)
Quarter: 2014Q2

REPORT INFORMATION
  Report Type: Spontaneous
  Country: US (occurrence: None)
  Receive Date: 20140415
  Receipt Date: 20140415
  Transmission Date: 20141212
  Serious: No
  Sender: FDA-Public Use
  Company Number: None

PATIENT
  Age: 22 Year
  Sex: Male
  Weight: 81.65 kg

DRUGS (1)
  1. LAMICTAL 200MG UNICHEM PHARMACEUTICALS (USA) INC. [Suspect]
     Indication: AFFECT LABILITY
     Route: 048
     Dates: start: 20140212, end: 20140414

REACTIONS (13)
  - Panic attack [None]
  - Drug withdrawal syndrome [None]
  - Hot flush [None]
  - Formication [None]
  - Nausea [None]
  - Headache [None]
  - Pain [None]
  - Chest discomfort [None]
  - Heart rate increased [None]
  - Derealisation [None]
  - Fear [None]
  - Feeling of despair [None]
  - Morbid thoughts [None]
